FAERS Safety Report 19991311 (Version 1)
Quarter: 2021Q4

REPORT INFORMATION
  Report Type: Spontaneous
  Country: RU (occurrence: RU)
  Receive Date: 20211025
  Receipt Date: 20211025
  Transmission Date: 20220303
  Serious: Yes (Hospitalization, Other)
  Sender: FDA-Public Use
  Company Number: RU-ROCHE-2937243

PATIENT
  Age: 38 Year
  Sex: Female

DRUGS (7)
  1. TRASTUZUMAB [Suspect]
     Active Substance: TRASTUZUMAB
     Indication: Breast cancer
     Route: 041
  2. PACLITAXEL [Concomitant]
     Active Substance: PACLITAXEL
  3. ABRAXANE [Concomitant]
     Active Substance: PACLITAXEL
  4. CISPLATIN [Concomitant]
     Active Substance: CISPLATIN
  5. GEMCITABINE [Concomitant]
     Active Substance: GEMCITABINE
  6. DOCETAXEL [Concomitant]
     Active Substance: DOCETAXEL
  7. DOXORUBICIN [Concomitant]
     Active Substance: DOXORUBICIN

REACTIONS (15)
  - Female reproductive tract disorder [Unknown]
  - Ureteral disorder [Unknown]
  - Hydronephrosis [Unknown]
  - Mass [Unknown]
  - Liver disorder [Unknown]
  - Hydrothorax [Unknown]
  - Lymphadenopathy [Unknown]
  - Pulmonary fibrosis [Unknown]
  - Metastases to bone [Unknown]
  - Pulmonary artery thrombosis [Unknown]
  - Ejection fraction abnormal [Unknown]
  - Lymphostasis [Unknown]
  - Lung disorder [Unknown]
  - Pulmonary mass [Unknown]
  - Pain [Unknown]
